FAERS Safety Report 22137995 (Version 1)
Quarter: 2023Q1

REPORT INFORMATION
  Report Type: Spontaneous
  Country: US (occurrence: US)
  Receive Date: 20230325
  Receipt Date: 20230325
  Transmission Date: 20230418
  Serious: No
  Sender: FDA-Public Use
  Company Number: US-drreddys-SPO/USA/23/0161372

PATIENT
  Age: 34 Year
  Sex: Female

DRUGS (1)
  1. ZENATANE [Suspect]
     Active Substance: ISOTRETINOIN
     Indication: Product used for unknown indication
     Dosage: RMA ISSUE DATE: 20 OCTOBER 2022 03:23:39 PM, 17 NOVEMBER 2022 02:10:21 PM, 23 DECEMBER 2022 05:06:36

REACTIONS (1)
  - Adverse drug reaction [Unknown]
